FAERS Safety Report 8069232-8 (Version None)
Quarter: 2012Q1

REPORT INFORMATION
  Report Type: 
  Country: None (occurrence: None)
  Receive Date: 20120125
  Receipt Date: 20120116
  Transmission Date: 20120608
  Serious: Yes (Other)
  Sender: FDA-Public Use
  Company Number: FR-BRISTOL-MYERS SQUIBB COMPANY-16357196

PATIENT
  Age: 48 Year
  Sex: Male

DRUGS (3)
  1. NORVIR [Suspect]
     Dosage: 100 MG CAPSULE (RITONAVIR)
     Dates: start: 20080421, end: 20110530
  2. REYATAZ [Suspect]
     Indication: HIV INFECTION
     Route: 048
     Dates: start: 20080421, end: 20110530
  3. ABACAVIR SULFATE AND LAMIVUDINE [Suspect]
     Dosage: 1 DF = 600MG/300MG TABLET
     Dates: start: 20080526, end: 20110530

REACTIONS (1)
  - RENAL COLIC [None]
